FAERS Safety Report 9207577 (Version 1)
Quarter: 2013Q1

REPORT INFORMATION
  Report Type: Spontaneous
  Country: US (occurrence: None)
  Receive Date: 20120719
  Receipt Date: 20120719
  Transmission Date: 20140127
  Serious: Yes (Disabling)
  Sender: FDA-Public Use
  Company Number: SP03790

PATIENT
  Age: 75 Year
  Sex: Female
  Weight: 56.7 kg

DRUGS (9)
  1. XIFAXAN [Suspect]
     Indication: LIVER DISORDER
     Route: 048
     Dates: start: 2011, end: 20110626
  2. NADOLOL [Concomitant]
  3. PREDNISONE [Concomitant]
  4. FOLIC ACID [Concomitant]
  5. SERTRALINE [Concomitant]
  6. OMEPRAZOLE [Concomitant]
  7. FUROSEMIDE [Concomitant]
  8. SPIRONOLACTONE [Concomitant]
  9. PROBIOTIC [Concomitant]

REACTIONS (1)
  - Diarrhoea [None]
